FAERS Safety Report 25120041 (Version 1)
Quarter: 2025Q1

REPORT INFORMATION
  Report Type: Spontaneous
  Country: ES (occurrence: ES)
  Receive Date: 20250325
  Receipt Date: 20250325
  Transmission Date: 20250408
  Serious: Yes (Death)
  Sender: MYLAN
  Company Number: ES-ROCHE-10000222952

PATIENT
  Sex: Male

DRUGS (32)
  1. VENLAFAXINE [Interacting]
     Active Substance: VENLAFAXINE HYDROCHLORIDE
     Indication: Product used for unknown indication
  2. VENLAFAXINE [Interacting]
     Active Substance: VENLAFAXINE HYDROCHLORIDE
     Route: 065
  3. VENLAFAXINE [Interacting]
     Active Substance: VENLAFAXINE HYDROCHLORIDE
     Route: 065
  4. VENLAFAXINE [Interacting]
     Active Substance: VENLAFAXINE HYDROCHLORIDE
  5. QUETIAPINE [Interacting]
     Active Substance: QUETIAPINE
     Indication: Product used for unknown indication
  6. QUETIAPINE [Interacting]
     Active Substance: QUETIAPINE
     Route: 065
  7. QUETIAPINE [Interacting]
     Active Substance: QUETIAPINE
     Route: 065
  8. QUETIAPINE [Interacting]
     Active Substance: QUETIAPINE
  9. ALPRAZOLAM [Interacting]
     Active Substance: ALPRAZOLAM
     Indication: Product used for unknown indication
  10. ALPRAZOLAM [Interacting]
     Active Substance: ALPRAZOLAM
     Route: 065
  11. ALPRAZOLAM [Interacting]
     Active Substance: ALPRAZOLAM
     Route: 065
  12. ALPRAZOLAM [Interacting]
     Active Substance: ALPRAZOLAM
  13. FENTANYL [Interacting]
     Active Substance: FENTANYL
     Indication: Product used for unknown indication
  14. FENTANYL [Interacting]
     Active Substance: FENTANYL
     Route: 065
  15. FENTANYL [Interacting]
     Active Substance: FENTANYL
     Route: 065
  16. FENTANYL [Interacting]
     Active Substance: FENTANYL
  17. ZOLPIDEM [Interacting]
     Active Substance: ZOLPIDEM TARTRATE
     Indication: Product used for unknown indication
  18. ZOLPIDEM [Interacting]
     Active Substance: ZOLPIDEM TARTRATE
     Route: 065
  19. ZOLPIDEM [Interacting]
     Active Substance: ZOLPIDEM TARTRATE
     Route: 065
  20. ZOLPIDEM [Interacting]
     Active Substance: ZOLPIDEM TARTRATE
  21. CLONAZEPAM [Interacting]
     Active Substance: CLONAZEPAM
     Indication: Product used for unknown indication
  22. CLONAZEPAM [Interacting]
     Active Substance: CLONAZEPAM
     Route: 065
  23. CLONAZEPAM [Interacting]
     Active Substance: CLONAZEPAM
     Route: 065
  24. CLONAZEPAM [Interacting]
     Active Substance: CLONAZEPAM
  25. DIAZEPAM [Interacting]
     Active Substance: DIAZEPAM
     Indication: Product used for unknown indication
  26. DIAZEPAM [Interacting]
     Active Substance: DIAZEPAM
     Route: 065
  27. DIAZEPAM [Interacting]
     Active Substance: DIAZEPAM
     Route: 065
  28. DIAZEPAM [Interacting]
     Active Substance: DIAZEPAM
  29. PROPOFOL [Interacting]
     Active Substance: PROPOFOL
     Indication: Product used for unknown indication
  30. PROPOFOL [Interacting]
     Active Substance: PROPOFOL
     Route: 065
  31. PROPOFOL [Interacting]
     Active Substance: PROPOFOL
     Route: 065
  32. PROPOFOL [Interacting]
     Active Substance: PROPOFOL

REACTIONS (3)
  - Non-cardiogenic pulmonary oedema [Fatal]
  - Drug interaction [Fatal]
  - Toxicity to various agents [Fatal]
